FAERS Safety Report 6323918-1 (Version None)
Quarter: 2009Q3

REPORT INFORMATION
  Report Type: 
  Country: None (occurrence: None)
  Receive Date: 20090824
  Receipt Date: 20090817
  Transmission Date: 20100115
  Serious: Yes (Hospitalization, Congenital Anomaly)
  Sender: FDA-Public Use
  Company Number: A0681534A

PATIENT
  Sex: Male
  Weight: 1.6 kg

DRUGS (8)
  1. PAXIL [Suspect]
     Indication: DEPRESSION
     Dosage: 20MG PER DAY
     Dates: start: 20021001, end: 20030301
  2. VITAMIN TAB [Concomitant]
  3. PROCARDIA XL [Concomitant]
  4. ADENOSINE [Concomitant]
     Dates: start: 20030605
  5. FLOVENT [Concomitant]
  6. ALBUTEROL [Concomitant]
  7. SEREVENT [Concomitant]
  8. KEFLEX [Concomitant]
     Dates: start: 20030401

REACTIONS (4)
  - ATRIAL SEPTAL DEFECT [None]
  - CARDIAC MURMUR [None]
  - DRUG EXPOSURE DURING PREGNANCY [None]
  - PATENT DUCTUS ARTERIOSUS [None]
